FAERS Safety Report 17443211 (Version 1)
Quarter: 2020Q1

REPORT INFORMATION
  Report Type: Spontaneous
  Country: GB (occurrence: GB)
  Receive Date: 20200221
  Receipt Date: 20200221
  Transmission Date: 20200409
  Serious: Yes (Life-Threatening, Hospitalization, Other)
  Sender: FDA-Public Use
  Company Number: GB-SCIEGEN PHARMACEUTICALS INC-2020SCILIT00042

PATIENT
  Age: 47 Year
  Sex: Female
  Weight: 78 kg

DRUGS (7)
  1. METHYLPREDNISOLONE. [Interacting]
     Active Substance: METHYLPREDNISOLONE
  2. QUETIAPINE. [Interacting]
     Active Substance: QUETIAPINE
  3. SERTRALINE HYDROCHLORIDE TABLETS [Suspect]
     Active Substance: SERTRALINE HYDROCHLORIDE
  4. BENZYLPENICILLIN [Interacting]
     Active Substance: PENICILLIN G
  5. LANSOPRAZOLE. [Concomitant]
     Active Substance: LANSOPRAZOLE
  6. CLARITHROMYCIN. [Interacting]
     Active Substance: CLARITHROMYCIN
  7. CASPOFUNGIN [Interacting]
     Active Substance: CASPOFUNGIN

REACTIONS (1)
  - Hypersensitivity pneumonitis [Recovered/Resolved]

NARRATIVE: CASE EVENT DATE: 20180731
